FAERS Safety Report 15129678 (Version 2)
Quarter: 2019Q2

REPORT INFORMATION
  Report Type: Spontaneous
  Country: US (occurrence: US)
  Receive Date: 20180711
  Receipt Date: 20190515
  Transmission Date: 20190711
  Serious: No
  Sender: FDA-Public Use
  Company Number: US-SA-2018SA179461

PATIENT
  Age: 39 Year
  Sex: Male

DRUGS (1)
  1. LEMTRADA [Suspect]
     Active Substance: ALEMTUZUMAB
     Indication: MULTIPLE SCLEROSIS
     Dosage: 12 MG, QD
     Route: 041
     Dates: start: 20160801, end: 20160805

REACTIONS (4)
  - Dysstasia [Not Recovered/Not Resolved]
  - Headache [Not Recovered/Not Resolved]
  - Balance disorder [Not Recovered/Not Resolved]
  - Influenza like illness [Not Recovered/Not Resolved]
